FAERS Safety Report 26002035 (Version 1)
Quarter: 2025Q4

REPORT INFORMATION
  Report Type: Spontaneous
  Country: CN (occurrence: CN)
  Receive Date: 20251105
  Receipt Date: 20251105
  Transmission Date: 20260117
  Serious: Yes (Hospitalization, Disabling)
  Sender: PFIZER
  Company Number: CN-PFIZER INC-PV202500127010

PATIENT
  Age: 33 Year
  Sex: Female
  Weight: 52 kg

DRUGS (3)
  1. BRENTUXIMAB VEDOTIN [Suspect]
     Active Substance: BRENTUXIMAB VEDOTIN
     Indication: Hodgkin^s disease
     Dosage: 61.2 MG, EVERY 21 DAYS (Q3WEEKS   )
     Route: 041
     Dates: start: 20250709, end: 20251023
  2. EPIRUBICIN HYDROCHLORIDE [Suspect]
     Active Substance: EPIRUBICIN HYDROCHLORIDE
     Indication: Hodgkin^s disease
     Dosage: 56.5 MG, EVERY 21 DAYS (Q3WEEKS  )
     Route: 041
     Dates: start: 20250709, end: 20251023
  3. VINCRISTINE SULFATE [Suspect]
     Active Substance: VINCRISTINE SULFATE
     Indication: Hodgkin^s disease
     Dosage: 2 MG, EVERY 21 DAYS (Q3WEEKS   )
     Route: 041
     Dates: start: 20250709, end: 20251023

REACTIONS (2)
  - Drug eruption [Recovering/Resolving]
  - White blood cell count decreased [Recovering/Resolving]

NARRATIVE: CASE EVENT DATE: 20250723
